FAERS Safety Report 10914537 (Version 1)
Quarter: 2015Q1

REPORT INFORMATION
  Report Type: Spontaneous
  Country: US (occurrence: US)
  Receive Date: 20150313
  Receipt Date: 20150313
  Transmission Date: 20150721
  Serious: No
  Sender: FDA-Public Use
  Company Number: US-GLAXOSMITHKLINE-US2015026703

PATIENT
  Age: 60 Year
  Sex: Female

DRUGS (11)
  1. BREO ELLIPTA [Suspect]
     Active Substance: FLUTICASONE FUROATE\VILANTEROL TRIFENATATE
     Indication: EMPHYSEMA
     Dosage: 1 PUFF(S), 1D
     Route: 055
     Dates: start: 201410, end: 20141231
  2. BREO ELLIPTA [Suspect]
     Active Substance: FLUTICASONE FUROATE\VILANTEROL TRIFENATATE
     Indication: PULMONARY HYPERTENSION
  3. SPIRIVA [Concomitant]
     Active Substance: TIOTROPIUM BROMIDE MONOHYDRATE
  4. POTASSIUM [Concomitant]
     Active Substance: POTASSIUM
  5. DERMODEX [Concomitant]
  6. ASPIRIN. [Concomitant]
     Active Substance: ASPIRIN
  7. ZETIA [Concomitant]
     Active Substance: EZETIMIBE
  8. ACCOLATE [Concomitant]
     Active Substance: ZAFIRLUKAST
  9. MONOPRIL [Concomitant]
     Active Substance: FOSINOPRIL SODIUM
  10. VERAPAMIL [Concomitant]
     Active Substance: VERAPAMIL HYDROCHLORIDE
  11. XARELTO [Concomitant]
     Active Substance: RIVAROXABAN

REACTIONS (2)
  - Musculoskeletal pain [Recovered/Resolved]
  - Sleep disorder [Recovered/Resolved]

NARRATIVE: CASE EVENT DATE: 201410
